FAERS Safety Report 10186661 (Version 1)
Quarter: 2014Q2

REPORT INFORMATION
  Report Type: Spontaneous
  Country: GB (occurrence: GB)
  Receive Date: 20140521
  Receipt Date: 20140521
  Transmission Date: 20141212
  Serious: Yes (Disabling)
  Sender: FDA-Public Use
  Company Number: GB-MYLANLABS-2014S1010756

PATIENT
  Age: 76 Year
  Sex: Male
  Weight: 80.6 kg

DRUGS (6)
  1. RISPERIDONE [Suspect]
     Route: 048
     Dates: start: 20140110, end: 20140214
  2. MIRTAZAPINE [Concomitant]
     Indication: DEPRESSION
     Route: 048
     Dates: start: 20140224, end: 20140302
  3. LORAZEPAM [Concomitant]
     Indication: AGITATION
     Route: 048
     Dates: start: 20140209, end: 20140305
  4. SERTRALINE [Concomitant]
     Indication: DEPRESSION
     Dosage: ONGOING.
     Route: 048
     Dates: start: 20140318
  5. DILTIAZEM [Concomitant]
     Route: 048
     Dates: start: 20140110, end: 20140125
  6. ATORVASTATIN [Concomitant]
     Dosage: ONGOING.
     Route: 048
     Dates: start: 20140110

REACTIONS (7)
  - Catatonia [Recovered/Resolved]
  - Extrapyramidal disorder [Recovered/Resolved]
  - Movement disorder [Recovered/Resolved]
  - Muscle twitching [Recovered/Resolved]
  - Dyskinesia [Recovered/Resolved]
  - Posture abnormal [Recovered/Resolved]
  - Drug hypersensitivity [Recovered/Resolved]
